FAERS Safety Report 17536792 (Version 1)
Quarter: 2020Q1

REPORT INFORMATION
  Report Type: Spontaneous
  Country: US (occurrence: US)
  Receive Date: 20200313
  Receipt Date: 20200313
  Transmission Date: 20200409
  Serious: Yes (Other)
  Sender: FDA-Public Use
  Company Number: US-JNJFOC-20200112124

PATIENT
  Age: 82 Year
  Sex: Female
  Weight: 46.76 kg

DRUGS (1)
  1. BENADRYL EXTRA STRENGTH ITCH COOLING [Suspect]
     Active Substance: DIPHENHYDRAMINE HYDROCHLORIDE\ZINC ACETATE
     Indication: PRURITUS
     Dosage: COUPLE OF SPRAYS ONCE A DAY; PRODUCT LAST ADMIN: 06-JAN-2020
     Route: 061
     Dates: start: 202001

REACTIONS (3)
  - Cerebrovascular accident [Unknown]
  - Application site rash [Not Recovered/Not Resolved]
  - Pruritus [Not Recovered/Not Resolved]

NARRATIVE: CASE EVENT DATE: 20200107
